FAERS Safety Report 10650540 (Version 2)
Quarter: 2015Q4

REPORT INFORMATION
  Report Type: Spontaneous
  Country: US (occurrence: US)
  Receive Date: 20141214
  Receipt Date: 20151107
  Transmission Date: 20160304
  Serious: No
  Sender: FDA-Public Use
  Company Number: US-BAUSCH-SYM-2014-22976

PATIENT
  Age: 61 Year
  Sex: Male

DRUGS (5)
  1. XENAZINE [Suspect]
     Active Substance: TETRABENAZINE
     Dosage: WEEK 2 IN THE EVENING
     Route: 048
     Dates: start: 20150617
  2. NORCO [Concomitant]
     Active Substance: ACETAMINOPHEN\HYDROCODONE BITARTRATE
     Indication: PRODUCT USED FOR UNKNOWN INDICATION
  3. XENAZINE [Suspect]
     Active Substance: TETRABENAZINE
     Dosage: WEEK 2 IN THE MORNING
     Route: 048
     Dates: start: 20150617
  4. XENAZINE [Suspect]
     Active Substance: TETRABENAZINE
     Indication: MOVEMENT DISORDER
     Route: 048
     Dates: start: 201406
  5. XENAZINE [Suspect]
     Active Substance: TETRABENAZINE
     Indication: TARDIVE DYSKINESIA
     Dosage: WEEK 1
     Route: 048
     Dates: start: 20150617

REACTIONS (3)
  - Off label use [Unknown]
  - Fatigue [Unknown]
  - Drug ineffective [Recovered/Resolved]

NARRATIVE: CASE EVENT DATE: 20150617
